FAERS Safety Report 6018041-X (Version None)
Quarter: 2008Q4

REPORT INFORMATION
  Report Type: 
  Country: None (occurrence: None)
  Receive Date: 20081223
  Receipt Date: 20081221
  Transmission Date: 20090506
  Serious: Yes (Hospitalization)
  Sender: FDA-Public Use
  Company Number: US-WYE-H07384808

PATIENT
  Sex: Male

DRUGS (1)
  1. PRISTIQ [Suspect]
     Dosage: 100 MG, FREQUENCY NOT SPECIFIED
     Dates: start: 20080701

REACTIONS (2)
  - CONDITION AGGRAVATED [None]
  - MIGRAINE [None]
